FAERS Safety Report 14801887 (Version 3)
Quarter: 2019Q4

REPORT INFORMATION
  Report Type: Spontaneous
  Country: US (occurrence: US)
  Receive Date: 20180424
  Receipt Date: 20191023
  Transmission Date: 20200122
  Serious: Yes (Other)
  Sender: FDA-Public Use
  Company Number: US-PURDUE PHARMA-USA-2017-0141303

PATIENT
  Sex: Male

DRUGS (3)
  1. HYDROCODONE BITARTRATE (SIMILAR TO NDA 206627) [Suspect]
     Active Substance: HYDROCODONE BITARTRATE
     Indication: NEPHROLITHIASIS
     Dosage: UNK
     Route: 048
  2. OXYMORPHONE [Suspect]
     Active Substance: OXYMORPHONE
     Indication: NEPHROLITHIASIS
     Dosage: UNK
     Route: 048
  3. OXYCODONE HYDROCHLORIDE (SIMILAR TO NDA 22-272) [Suspect]
     Active Substance: OXYCODONE HYDROCHLORIDE
     Indication: NEPHROLITHIASIS
     Dosage: UNK
     Route: 048

REACTIONS (6)
  - Drug abuse [Unknown]
  - Impaired driving ability [Unknown]
  - Ocular hyperaemia [Unknown]
  - Abnormal behaviour [Unknown]
  - Dysarthria [Unknown]
  - Glassy eyes [Unknown]

NARRATIVE: CASE EVENT DATE: 20170902
